FAERS Safety Report 9925001 (Version 1)
Quarter: 2014Q1

REPORT INFORMATION
  Report Type: Spontaneous
  Country: IT (occurrence: None)
  Receive Date: 20140221
  Receipt Date: 20140221
  Transmission Date: 20141002
  Serious: Yes (Hospitalization)
  Sender: FDA-Public Use
  Company Number: 2014AP001391

PATIENT
  Age: 91 Year
  Sex: Female

DRUGS (7)
  1. PANTOPRAZOLE (PANTOPRAZOLE) [Suspect]
     Route: 048
     Dates: end: 20140125
  2. TICLOPIDINE [Suspect]
     Route: 048
     Dates: end: 20140125
  3. METOLAZONE [Suspect]
     Dates: end: 20140125
  4. BISOPROLOL HEMIFUMARATE [Concomitant]
  5. SPIRONOLACTONE (SPIRONOLACTONE) [Concomitant]
  6. CALCITROL [Concomitant]
  7. FUROSEMIDE (FUROSEMIDE) [Concomitant]

REACTIONS (3)
  - Rash maculo-papular [None]
  - Angioedema [None]
  - Rash erythematous [None]
